FAERS Safety Report 7916964 (Version 4)
Quarter: 2012Q4

REPORT INFORMATION
  Report Type: 
  Country: US (occurrence: US)
  Receive Date: 20110427
  Receipt Date: 20120924
  Transmission Date: 20130627
  Serious: Yes (Hospitalization, Other)
  Sender: FDA-Public Use
  Company Number: US-ASTRAZENECA-2011SE22467

PATIENT
  Age: 75 Year
  Sex: Female

DRUGS (7)
  1. ARIMIDEX [Suspect]
     Route: 048
  2. PRILOSEC [Suspect]
     Indication: GASTROOESOPHAGEAL REFLUX DISEASE
     Route: 048
  3. PREVACID [Concomitant]
  4. COZAAR [Concomitant]
  5. HYDROCHLOROTHIAZIDE [Concomitant]
  6. LIPITOR [Concomitant]
  7. ASPIRIN [Concomitant]

REACTIONS (5)
  - Dysphonia [Unknown]
  - Laryngeal cyst [Unknown]
  - Cardiac fibrillation [Unknown]
  - Nasal obstruction [Unknown]
  - Upper-airway cough syndrome [Unknown]
